FAERS Safety Report 6875966-0 (Version None)
Quarter: 2010Q3

REPORT INFORMATION
  Report Type: 
  Country: None (occurrence: None)
  Receive Date: 20100727
  Receipt Date: 20100714
  Transmission Date: 20110219
  Serious: Yes (Hospitalization)
  Sender: FDA-Public Use
  Company Number: PHHY2010GB32724

PATIENT
  Sex: Male

DRUGS (4)
  1. CLOZARIL [Suspect]
     Indication: SCHIZOPHRENIA
     Dosage: 250 MG, BID
     Route: 048
     Dates: start: 19990420
  2. CLOZARIL [Suspect]
     Dosage: 100 MG
     Route: 048
     Dates: start: 20100501
  3. RANITIDINE [Concomitant]
     Indication: DYSPEPSIA
     Dosage: 300 MG
     Route: 048
  4. OMEPRAZOLE [Concomitant]
     Indication: DYSPEPSIA
     Dosage: 40 MG, BID
     Route: 048

REACTIONS (9)
  - BARRETT'S OESOPHAGUS [None]
  - DRUG ABUSE [None]
  - DYSPHAGIA [None]
  - OESOPHAGEAL DILATATION [None]
  - OESOPHAGEAL STENOSIS [None]
  - ORTHOSTATIC HYPOTENSION [None]
  - OVERDOSE [None]
  - URINARY TRACT INFECTION [None]
  - WATER INTOXICATION [None]
